FAERS Safety Report 7242916-7 (Version None)
Quarter: 2011Q1

REPORT INFORMATION
  Report Type: 
  Country: None (occurrence: None)
  Receive Date: 20110125
  Receipt Date: 20110112
  Transmission Date: 20110831
  Serious: Yes (Hospitalization)
  Sender: FDA-Public Use
  Company Number: CH-ELI_LILLY_AND_COMPANY-CH201012000692

PATIENT
  Age: 43 Year
  Sex: Male
  Weight: 80 kg

DRUGS (7)
  1. CYMBALTA [Suspect]
     Indication: DEPRESSION
     Dosage: 30 MG, DAILY (1/D)
     Dates: start: 20100731
  2. CYMBALTA [Suspect]
     Dosage: 30 MG, DAILY (1/D)
     Dates: end: 20100914
  3. CYMBALTA [Suspect]
     Dosage: UNK, UNKNOWN
  4. CYMBALTA [Suspect]
     Dosage: 60 MG, DAILY (1/D)
     Route: 048
  5. ECHINACEA                          /01323501/ [Concomitant]
     Dosage: UNK, 3/D
  6. RESYL PLUS [Concomitant]
     Indication: COUGH
     Dosage: UNK, UNK
     Dates: start: 20100901
  7. TEMESTA [Concomitant]
     Dosage: 1 MG, AS NEEDED
     Route: 048

REACTIONS (14)
  - ELECTROCARDIOGRAM ST SEGMENT ELEVATION [None]
  - HEADACHE [None]
  - VOMITING [None]
  - HYPERHIDROSIS [None]
  - WEIGHT DECREASED [None]
  - SINUS TACHYCARDIA [None]
  - LUNG INFILTRATION [None]
  - HAEMOPTYSIS [None]
  - DIARRHOEA [None]
  - CHEST PAIN [None]
  - BREATH SOUNDS ABNORMAL [None]
  - PRODUCTIVE COUGH [None]
  - BRONCHITIS [None]
  - CARDIAC MURMUR [None]
